FAERS Safety Report 7634293-4 (Version None)
Quarter: 2011Q3

REPORT INFORMATION
  Report Type: 
  Country: None (occurrence: None)
  Receive Date: 20110725
  Receipt Date: 20110720
  Transmission Date: 20111222
  Serious: No
  Sender: FDA-Public Use
  Company Number: US-PFIZER INC-2011165310

PATIENT
  Sex: Male

DRUGS (3)
  1. TYLENOL-500 [Interacting]
     Indication: MIGRAINE
     Dosage: UNK
     Dates: start: 20110719
  2. EXCEDRIN (MIGRAINE) [Concomitant]
     Indication: MIGRAINE
     Dosage: UNK
  3. ADVIL [Suspect]
     Indication: MIGRAINE
     Dosage: UNK
     Route: 048
     Dates: start: 20110719

REACTIONS (5)
  - MUSCLE TIGHTNESS [None]
  - MALAISE [None]
  - MUSCULAR WEAKNESS [None]
  - DRUG INTERACTION [None]
  - BACK PAIN [None]
